FAERS Safety Report 14683155 (Version 5)
Quarter: 2018Q2

REPORT INFORMATION
  Report Type: Report from Study
  Country: ES (occurrence: ES)
  Receive Date: 20180327
  Receipt Date: 20180426
  Transmission Date: 20180711
  Serious: Yes (Hospitalization, Other)
  Sender: FDA-Public Use
  Company Number: ES-ASTRAZENECA-2018SE35071

PATIENT
  Age: 24796 Day
  Sex: Female
  Weight: 72 kg

DRUGS (20)
  1. TARGIN [Concomitant]
     Active Substance: NALOXONE HYDROCHLORIDE\OXYCODONE HYDROCHLORIDE
  2. ORFIDAL [Concomitant]
     Active Substance: LORAZEPAM
  3. BISOPROLOL [Concomitant]
     Active Substance: BISOPROLOL
     Dosage: DOSAGE
  4. ESCITALOPRAM [Concomitant]
     Active Substance: ESCITALOPRAM OXALATE
  5. ADIRO [Concomitant]
     Active Substance: ASPIRIN
  6. PREGABALIN. [Concomitant]
     Active Substance: PREGABALIN
  7. SIMVASTATIN. [Concomitant]
     Active Substance: SIMVASTATIN
  8. HYDROCHLOROTHIAZIDE. [Concomitant]
     Active Substance: HYDROCHLOROTHIAZIDE
  9. NEURONTIN [Concomitant]
     Active Substance: GABAPENTIN
  10. CIDINE [Concomitant]
  11. TRAMADOL. [Concomitant]
     Active Substance: TRAMADOL
  12. BROMAZEPAM [Concomitant]
     Active Substance: BROMAZEPAM
  13. LANSOPRAZOLE. [Concomitant]
     Active Substance: LANSOPRAZOLE
  14. RAMIPRIL. [Concomitant]
     Active Substance: RAMIPRIL
  15. DURVALUMAB. [Suspect]
     Active Substance: DURVALUMAB
     Indication: LUNG SQUAMOUS CELL CARCINOMA STAGE III
     Route: 042
     Dates: start: 20171222, end: 20180309
  16. MINITRAN [Concomitant]
     Active Substance: NITROGLYCERIN
  17. ADARTREL [Concomitant]
     Active Substance: ROPINIROLE
  18. EKLIRA [Concomitant]
     Active Substance: ACLIDINIUM BROMIDE
  19. POTASSIUM [Concomitant]
     Active Substance: POTASSIUM
  20. PARACETAMOL [Concomitant]
     Active Substance: ACETAMINOPHEN

REACTIONS (8)
  - Pyrexia [Recovered/Resolved]
  - Malignant neoplasm progression [Unknown]
  - Pneumonitis [Unknown]
  - Dyspnoea [Recovered/Resolved]
  - Chest pain [Recovered/Resolved]
  - Respiratory failure [Recovered/Resolved]
  - Toxicity to various agents [Unknown]
  - Hypersensitivity [Unknown]

NARRATIVE: CASE EVENT DATE: 20180312
